FAERS Safety Report 6129957-8 (Version None)
Quarter: 2009Q1

REPORT INFORMATION
  Report Type: 
  Country: None (occurrence: None)
  Receive Date: 20090323
  Receipt Date: 20090323
  Transmission Date: 20090719
  Serious: No
  Sender: FDA-Public Use
  Company Number: None

PATIENT
  Age: 68 Year
  Sex: Male
  Weight: 58.9676 kg

DRUGS (1)
  1. ADVAIR DISKUS 100/50 [Suspect]
     Indication: CHRONIC OBSTRUCTIVE PULMONARY DISEASE
     Dosage: 1 PUFF TWICE DAILY NASAL
     Route: 045
     Dates: start: 20080901, end: 20090320

REACTIONS (2)
  - CATARACT [None]
  - ECONOMIC PROBLEM [None]
